FAERS Safety Report 4763346-3 (Version None)
Quarter: 2005Q3

REPORT INFORMATION
  Report Type: 
  Country: None (occurrence: None)
  Receive Date: 20050826
  Receipt Date: 20050406
  Transmission Date: 20060218
  Serious: Yes (Other)
  Sender: FDA-Public Use
  Company Number: USA-2004-0015722

PATIENT
  Age: 44 Year
  Sex: Female

DRUGS (6)
  1. OXYCONTIN [Suspect]
     Indication: PAIN
     Dosage: 20 MG, BID, ORAL
     Route: 048
  2. LAMOTRIGINE [Concomitant]
  3. FOSAMAX [Concomitant]
  4. PAXIL [Concomitant]
  5. PREMARIN [Concomitant]
  6. NORTRIPTYLINE HCL [Concomitant]

REACTIONS (23)
  - ANXIETY [None]
  - ASTHENIA [None]
  - DEPRESSION [None]
  - DIZZINESS [None]
  - DRUG DEPENDENCE [None]
  - DRUG WITHDRAWAL SYNDROME [None]
  - HEADACHE [None]
  - HEMIPARESIS [None]
  - HYPERAESTHESIA [None]
  - HYPOAESTHESIA [None]
  - INITIAL INSOMNIA [None]
  - MUSCULOSKELETAL DISCOMFORT [None]
  - NEUROPATHIC PAIN [None]
  - NODULE ON EXTREMITY [None]
  - OBSESSIVE-COMPULSIVE DISORDER [None]
  - OEDEMA PERIPHERAL [None]
  - PAIN [None]
  - PAIN IN EXTREMITY [None]
  - PARAESTHESIA [None]
  - PARANOIA [None]
  - SENSORY LOSS [None]
  - SOMNOLENCE [None]
  - TENDERNESS [None]
